FAERS Safety Report 11253389 (Version 1)
Quarter: 2015Q3

REPORT INFORMATION
  Report Type: Spontaneous
  Country: MQ (occurrence: MQ)
  Receive Date: 20150709
  Receipt Date: 20150709
  Transmission Date: 20151125
  Serious: Yes (Other)
  Sender: FDA-Public Use
  Company Number: MQ-ASTRAZENECA-2015SE66377

PATIENT
  Age: 41 Year
  Sex: Male

DRUGS (1)
  1. XEROQUEL [Suspect]
     Active Substance: QUETIAPINE FUMARATE
     Route: 048
     Dates: start: 20150526

REACTIONS (3)
  - Hyperglycaemia [Recovered/Resolved]
  - Off label use [Recovered/Resolved]
  - Syncope [Unknown]

NARRATIVE: CASE EVENT DATE: 20150526
